FAERS Safety Report 7576555-5 (Version None)
Quarter: 2011Q2

REPORT INFORMATION
  Report Type: 
  Country: None (occurrence: None)
  Receive Date: 20110628
  Receipt Date: 20090511
  Transmission Date: 20111010
  Serious: Yes (Other)
  Sender: FDA-Public Use
  Company Number: US-BAYER-200918372NA

PATIENT
  Age: 39 Year
  Sex: Female
  Weight: 53 kg

DRUGS (16)
  1. PLAQUENIL [Concomitant]
  2. MYFORTIC [Concomitant]
  3. SENSIPAR [Concomitant]
  4. PREDNISONE [Concomitant]
  5. ADVAIR DISKUS 100/50 [Concomitant]
  6. PLAVIX [Concomitant]
  7. PROGRAF [Concomitant]
  8. CALCIUM CARBONATE [Concomitant]
  9. MAGNEVIST [Suspect]
     Indication: NUCLEAR MAGNETIC RESONANCE IMAGING BRAIN
     Dosage: 10 ML, ONCE
     Dates: start: 20031229, end: 20031229
  10. LEUPROLIDE ACE [Concomitant]
  11. EPOGEN [Concomitant]
  12. OMNISCAN [Suspect]
     Indication: NUCLEAR MAGNETIC RESONANCE IMAGING BRAIN
     Dosage: UNK
     Dates: start: 20011210, end: 20011210
  13. OMNISCAN [Suspect]
     Indication: NUCLEAR MAGNETIC RESONANCE IMAGING
     Dosage: UNK
     Dates: start: 20030424, end: 20030424
  14. OMNISCAN [Suspect]
     Dosage: UNK
     Route: 042
     Dates: start: 20041210, end: 20041210
  15. RENAGEL [Concomitant]
  16. FERROUS SULFATE TAB [Concomitant]

REACTIONS (7)
  - SKIN LESION [None]
  - NEPHROGENIC SYSTEMIC FIBROSIS [None]
  - PAIN [None]
  - JOINT CONTRACTURE [None]
  - JOINT RANGE OF MOTION DECREASED [None]
  - SKIN TIGHTNESS [None]
  - MOBILITY DECREASED [None]
